FAERS Safety Report 10033923 (Version 3)
Quarter: 2014Q2

REPORT INFORMATION
  Report Type: Spontaneous
  Country: US (occurrence: US)
  Receive Date: 20140325
  Receipt Date: 20140421
  Transmission Date: 20141212
  Serious: Yes (Other)
  Sender: FDA-Public Use
  Company Number: US-BRISTOL-MYERS SQUIBB COMPANY-20495636

PATIENT
  Age: 75 Year
  Sex: Male

DRUGS (18)
  1. SPRYCEL (CML) TABS 100 MG [Suspect]
     Indication: CHRONIC MYELOID LEUKAEMIA
     Dosage: ONE TABLET
     Route: 048
     Dates: start: 20120508, end: 20140307
  2. ALLOPURINOL [Concomitant]
     Route: 048
  3. AMIODARONE HCL [Concomitant]
     Route: 048
     Dates: start: 20130909
  4. ASPIRIN [Concomitant]
     Route: 048
  5. COLACE [Concomitant]
     Route: 048
     Dates: start: 20130909
  6. ESCITALOPRAM OXALATE [Concomitant]
  7. FUROSEMIDE [Concomitant]
     Route: 048
  8. KLOR-CON [Concomitant]
     Dosage: 1 DF: 20MEQ
     Route: 048
  9. LAMISIL [Concomitant]
     Route: 048
     Dates: start: 20130909
  10. METOLAZONE [Concomitant]
     Route: 048
  11. METOPROLOL SUCCINATE [Concomitant]
     Dosage: SR 24 HOUR ORAL
     Route: 048
     Dates: start: 20130909
  12. NORCO [Concomitant]
     Dosage: 3-325 MG
  13. SUCRALFATE [Concomitant]
     Dates: start: 20130909
  14. TERBINAFINE [Concomitant]
     Route: 048
     Dates: start: 20130909
  15. TYLENOL [Concomitant]
  16. WARFARIN SODIUM [Concomitant]
     Route: 048
  17. POLYETHYLENE GLYCOL [Concomitant]
     Dosage: 19G
  18. MAGNESIUM OXIDE [Concomitant]
     Dates: start: 20131202

REACTIONS (3)
  - Basal cell carcinoma [Unknown]
  - Squamous cell carcinoma of skin [Unknown]
  - Gynaecomastia [Unknown]
